FAERS Safety Report 9008202 (Version 1)
Quarter: 2012Q4

REPORT INFORMATION
  Report Type: Spontaneous
  Country: FR (occurrence: None)
  Receive Date: 20121227
  Receipt Date: 20121227
  Transmission Date: 20130627
  Serious: Yes (Other)
  Sender: FDA-Public Use
  Company Number: 7181476

PATIENT
  Age: 58 Year
  Sex: Female

DRUGS (5)
  1. LEVOTHYROX [Suspect]
     Indication: THYROIDITIS
     Route: 048
     Dates: end: 20121007
  2. LEVOTHYROX [Suspect]
     Indication: THYROIDITIS
     Route: 048
     Dates: start: 20121008
  3. VICTOZA [Suspect]
     Indication: DIABETES
     Route: 058
     Dates: start: 20121008, end: 20121014
  4. VICTOZA [Suspect]
     Indication: DIABETES
     Route: 058
     Dates: start: 20121015, end: 20121019
  5. CIPROFIBRATE (CIPROFIBRATE) [Concomitant]

REACTIONS (8)
  - Respiratory disorder [None]
  - Chest discomfort [None]
  - Anxiety [None]
  - Headache [None]
  - Bronchitis [None]
  - Productive cough [None]
  - Dyspnoea [None]
  - Depression [None]
